FAERS Safety Report 5295518-6 (Version None)
Quarter: 2007Q2

REPORT INFORMATION
  Report Type: 
  Country: None (occurrence: None)
  Receive Date: 20070406
  Receipt Date: 20070322
  Transmission Date: 20071010
  Serious: Yes (Hospitalization)
  Sender: FDA-Public Use
  Company Number: 2007000342

PATIENT
  Age: 84 Year
  Sex: Female

DRUGS (1)
  1. MACUGEN [Suspect]
     Indication: MACULAR DEGENERATION
     Dosage: 0.3 MG (Q6WKS), INTRA-VITREAL
     Dates: start: 20061213

REACTIONS (3)
  - FALL [None]
  - UVEITIS [None]
  - VITRITIS [None]
